FAERS Safety Report 8778977 (Version 1)
Quarter: 2012Q4

REPORT INFORMATION
  Report Type: 
  Country: DE (occurrence: DE)
  Receive Date: 20120912
  Receipt Date: 20120912
  Transmission Date: 20130627
  Serious: Yes (Death)
  Sender: FDA-Public Use
  Company Number: DE-CELGENEUS-062-21880-12072874

PATIENT
  Age: 77 Year
  Sex: Male

DRUGS (5)
  1. REVLIMID [Suspect]
     Indication: ANAEMIA
     Route: 048
  2. REVLIMID [Suspect]
     Indication: ANAEMIA
  3. REVLIMID [Suspect]
     Indication: PURPURA
  4. REVLIMID [Suspect]
     Indication: MYELOID LEUKAEMIA
  5. REVLIMID [Suspect]
     Indication: NEOPLASM

REACTIONS (1)
  - Death [Fatal]
